FAERS Safety Report 10364064 (Version 1)
Quarter: 2014Q3

REPORT INFORMATION
  Report Type: Spontaneous
  Country: US (occurrence: US)
  Receive Date: 20140806
  Receipt Date: 20140806
  Transmission Date: 20150326
  Serious: Yes (Death, Hospitalization)
  Sender: FDA-Public Use
  Company Number: US-ROCHE-1445268

PATIENT
  Age: 84 Year
  Sex: Female
  Weight: 50.4 kg

DRUGS (1)
  1. ACTIVASE [Suspect]
     Active Substance: ALTEPLASE
     Indication: CEREBROVASCULAR ACCIDENT
     Route: 041
     Dates: start: 20140802, end: 20140802

REACTIONS (2)
  - Haemorrhage intracranial [Fatal]
  - Confusional state [Fatal]

NARRATIVE: CASE EVENT DATE: 20140802
